FAERS Safety Report 4596847-1 (Version None)
Quarter: 2005Q1

REPORT INFORMATION
  Report Type: 
  Country: None (occurrence: None)
  Receive Date: 20050225
  Receipt Date: 20050214
  Transmission Date: 20050727
  Serious: Yes (Hospitalization)
  Sender: FDA-Public Use
  Company Number: 2004UW23557

PATIENT
  Age: 71 Year
  Sex: Male
  Weight: 68.4932 kg

DRUGS (12)
  1. CRESTOR [Suspect]
     Indication: AORTIC ANEURYSM
     Dosage: 10 MG QD PO
     Route: 048
     Dates: start: 20040811, end: 20041004
  2. CRESTOR [Suspect]
     Indication: DYSLIPIDAEMIA
     Dosage: 10 MG QD PO
     Route: 048
     Dates: start: 20040811, end: 20041004
  3. CRESTOR [Suspect]
     Indication: PERIPHERAL VASCULAR DISORDER
     Dosage: 10 MG QD PO
     Route: 048
     Dates: start: 20040811, end: 20041004
  4. ASPIRIN [Concomitant]
  5. MAVIK [Concomitant]
  6. PREVACID [Concomitant]
  7. PLAVIX [Concomitant]
  8. TERAZOSIN [Concomitant]
  9. PROPHYLTHIOURACIL [Concomitant]
  10. FLAX SEED [Concomitant]
  11. GARLIC [Concomitant]
  12. FISH OIL [Concomitant]

REACTIONS (10)
  - CHILLS [None]
  - CIRCULATORY COLLAPSE [None]
  - DIARRHOEA [None]
  - FALL [None]
  - HYPERKALAEMIA [None]
  - HYPERTENSION [None]
  - PYREXIA [None]
  - RENAL FAILURE ACUTE [None]
  - RHABDOMYOLYSIS [None]
  - URINARY RETENTION [None]
